FAERS Safety Report 16143959 (Version 5)
Quarter: 2019Q2

REPORT INFORMATION
  Report Type: Report from Study
  Country: US (occurrence: US)
  Receive Date: 20190401
  Receipt Date: 20190621
  Transmission Date: 20190711
  Serious: Yes (Hospitalization)
  Sender: FDA-Public Use
  Company Number: US-ACTELION-A-US2018-181818

PATIENT
  Age: 43 Year
  Sex: Female
  Weight: 90.7 kg

DRUGS (4)
  1. VELETRI [Suspect]
     Active Substance: EPOPROSTENOL
     Dosage: 12.5 NG/KG, PER MIN
     Route: 042
  2. VELETRI [Suspect]
     Active Substance: EPOPROSTENOL
     Indication: PULMONARY HYPERTENSION
     Dosage: 15 NG/KG, PER MIN
     Route: 042
  3. VELETRI [Suspect]
     Active Substance: EPOPROSTENOL
     Dosage: 14 NG/KG, PER MIN
     Route: 042
  4. ADEMPAS [Concomitant]
     Active Substance: RIOCIGUAT

REACTIONS (20)
  - Vomiting [Unknown]
  - Fatigue [Unknown]
  - Infection [Unknown]
  - Musculoskeletal stiffness [Unknown]
  - Catheter site discharge [Unknown]
  - Erythema [Unknown]
  - Chills [Unknown]
  - Pyrexia [Unknown]
  - Pruritus [Unknown]
  - Bone pain [Unknown]
  - Dermatitis contact [Unknown]
  - Arthralgia [Unknown]
  - Pain in extremity [Unknown]
  - Device failure [Recovered/Resolved]
  - Staphylococcal infection [Unknown]
  - Device related infection [Unknown]
  - Drug withdrawal maintenance therapy [Unknown]
  - Urticaria [Unknown]
  - Malaise [Unknown]
  - Catheter placement [Unknown]

NARRATIVE: CASE EVENT DATE: 20181106
